FAERS Safety Report 8605601 (Version 2)
Quarter: 2012Q4

REPORT INFORMATION
  Report Type: 
  Country: JP (occurrence: JP)
  Receive Date: 20120608
  Receipt Date: 20121107
  Transmission Date: 20130627
  Serious: Yes (Hospitalization)
  Sender: FDA-Public Use
  Company Number: JP-BRISTOL-MYERS SQUIBB COMPANY-16663965

PATIENT
  Age: 74 Year
  Sex: Male

DRUGS (2)
  1. BRIPLATIN [Suspect]
     Indication: GASTRIC CANCER
     Dosage: 6 courses
  2. TS-1 [Suspect]
     Indication: GASTRIC CANCER
     Dosage: Courses:6

REACTIONS (1)
  - Pulmonary artery thrombosis [Unknown]
